FAERS Safety Report 17440375 (Version 3)
Quarter: 2020Q1

REPORT INFORMATION
  Report Type: Spontaneous
  Country: US (occurrence: US)
  Receive Date: 20200220
  Receipt Date: 20200327
  Transmission Date: 20200409
  Serious: Yes (Other)
  Sender: FDA-Public Use
  Company Number: US-TEVA-2020-US-1184349

PATIENT
  Age: 86 Year
  Sex: Female

DRUGS (3)
  1. SUMATRIPTAN. [Suspect]
     Active Substance: SUMATRIPTAN
     Route: 065
  2. ALPRAZOLAM. [Suspect]
     Active Substance: ALPRAZOLAM
     Route: 065
  3. BUTALBITAL, ASPIRIN, AND CAFFEINE [Suspect]
     Active Substance: ASPIRIN\BUTALBITAL\CAFFEINE
     Indication: TRIGEMINAL NERVE DISORDER
     Route: 065

REACTIONS (8)
  - Coronary artery disease [Recovering/Resolving]
  - Drug dependence [Unknown]
  - Urinary tract disorder [Unknown]
  - Somnolence [Unknown]
  - Product prescribing error [Unknown]
  - Irritable bowel syndrome [Unknown]
  - Headache [Recovered/Resolved]
  - Product use in unapproved indication [Unknown]
